FAERS Safety Report 6448247-7 (Version None)
Quarter: 2009Q4

REPORT INFORMATION
  Report Type: 
  Country: None (occurrence: None)
  Receive Date: 20091120
  Receipt Date: 20091111
  Transmission Date: 20100525
  Serious: Yes (Death)
  Sender: FDA-Public Use
  Company Number: CN-BRACCO-000117

PATIENT
  Age: 62 Year
  Sex: Male

DRUGS (6)
  1. ISOVUE-128 [Suspect]
     Indication: PULMONARY EMBOLISM
     Route: 042
     Dates: start: 20091109, end: 20091109
  2. ISOVUE-128 [Suspect]
     Indication: ANGIOGRAM
     Route: 042
     Dates: start: 20091109, end: 20091109
  3. OXYGEN [Concomitant]
     Route: 065
     Dates: start: 20091109, end: 20091109
  4. DEXAMETHASONE [Concomitant]
     Route: 065
     Dates: start: 20091109, end: 20091109
  5. SALINE [Concomitant]
     Route: 065
     Dates: start: 20091109, end: 20091109
  6. EPINEPHRINE [Concomitant]
     Route: 065
     Dates: start: 20091109, end: 20091109

REACTIONS (2)
  - CYANOSIS [None]
  - DYSPNOEA [None]
